FAERS Safety Report 14019137 (Version 1)
Quarter: 2017Q3

REPORT INFORMATION
  Report Type: Spontaneous
  Country: US (occurrence: US)
  Receive Date: 20170928
  Receipt Date: 20170928
  Transmission Date: 20171128
  Serious: Yes (Hospitalization, Disabling)
  Sender: FDA-Public Use
  Company Number: None

PATIENT
  Age: 37 Year
  Sex: Female
  Weight: 53.1 kg

DRUGS (9)
  1. AZATHIOPURINE [Concomitant]
     Active Substance: AZATHIOPRINE
  2. CHOLESTYRAMINE. [Concomitant]
     Active Substance: CHOLESTYRAMINE
  3. DOXEPIN [Concomitant]
     Active Substance: DOXEPIN
  4. HYDROCORTISONE. [Concomitant]
     Active Substance: HYDROCORTISONE
  5. TACROLIMUS. [Concomitant]
     Active Substance: TACROLIMUS
  6. FLUCONAZOLE. [Concomitant]
     Active Substance: FLUCONAZOLE
  7. ADALIMUMAB [Suspect]
     Active Substance: ADALIMUMAB
     Indication: DEMYELINATION
     Dosage: ?          OTHER FREQUENCY:EVERY 14 DAYS;?
     Route: 058
     Dates: end: 20170604
  8. PANTOPRAZOLE [Concomitant]
     Active Substance: PANTOPRAZOLE
  9. URSODIOL. [Concomitant]
     Active Substance: URSODIOL

REACTIONS (9)
  - Neoplasm [None]
  - Vasculitis [None]
  - Lymphoma [None]
  - Acute kidney injury [None]
  - Infection [None]
  - Hemiparesis [None]
  - Liver disorder [None]
  - Demyelination [None]
  - Transaminases increased [None]

NARRATIVE: CASE EVENT DATE: 20170609
